FAERS Safety Report 22223641 (Version 1)
Quarter: 2023Q2

REPORT INFORMATION
  Report Type: Spontaneous
  Country: CA (occurrence: CA)
  Receive Date: 20230418
  Receipt Date: 20230418
  Transmission Date: 20230722
  Serious: Yes (Life-Threatening, Hospitalization, Disabling, Other)
  Sender: FDA-Public Use
  Company Number: CA-ORGANON-O2304CAN001514

PATIENT
  Age: 28 Year
  Sex: Female
  Weight: 52 kg

DRUGS (18)
  1. MOMETASONE FUROATE [Suspect]
     Active Substance: MOMETASONE FUROATE
     Indication: Seborrhoeic dermatitis
     Dosage: 1 EVERY 1 DAYS
     Route: 061
  2. BETAMETHASONE DIPROPIONATE\CLOTRIMAZOLE [Suspect]
     Active Substance: BETAMETHASONE DIPROPIONATE\CLOTRIMAZOLE
     Indication: Dermatitis atopic
     Dosage: 2 EVERY 1 DAYS
     Route: 061
  3. ARISTOCORT [Suspect]
     Active Substance: TRIAMCINOLONE DIACETATE
     Indication: Dermatitis atopic
     Dosage: 2 EVERY 1 DAYS
     Route: 061
  4. BETAMETHASONE DIPROPIONATE\GENTAMICIN SULFATE [Suspect]
     Active Substance: BETAMETHASONE DIPROPIONATE\GENTAMICIN SULFATE
     Indication: Dermatitis atopic
     Dosage: 3 EVERY 1 DAYS
     Route: 061
  5. HYDROCORTISONE [Suspect]
     Active Substance: HYDROCORTISONE
     Indication: Dermatitis atopic
     Dosage: 1 EVERY 1 DAYS
     Route: 061
  6. HYDROCORTISONE [Suspect]
     Active Substance: HYDROCORTISONE
     Dosage: 2 EVERY 1 DAYS
     Route: 061
  7. HYDROCORTISONE [Suspect]
     Active Substance: HYDROCORTISONE
     Indication: Dermatitis atopic
     Dosage: 2 EVERY 1 DAYS
     Route: 061
  8. CLOBETASONE BUTYRATE [Suspect]
     Active Substance: CLOBETASONE BUTYRATE
     Indication: Dermatitis atopic
     Dosage: UNK,FORMULATION: MEDICATED CREAM
     Route: 061
  9. CLOBETASOL PROPIONATE CREAM [Suspect]
     Active Substance: CLOBETASOL PROPIONATE
     Indication: Dermatitis atopic
     Dosage: 2 EVERY 1 DAYS
     Route: 061
  10. CLOBETASOL PROPIONATE CREAM [Suspect]
     Active Substance: CLOBETASOL PROPIONATE
     Indication: Seborrhoeic dermatitis
     Dosage: AS REQUIRED
     Route: 061
  11. MOMETASONE [Suspect]
     Active Substance: MOMETASONE
     Indication: Dermatitis atopic
     Dosage: 2 EVERY 1 DAYS
     Route: 061
  12. PREDNISONE [Suspect]
     Active Substance: PREDNISONE
     Indication: Dermatitis atopic
     Dosage: UNK
     Route: 065
  13. PREDNISONE [Suspect]
     Active Substance: PREDNISONE
     Dosage: 30 MILLIGRAM, 1 EVERY 1 DAYS
     Route: 048
  14. METHOTREXATE [Concomitant]
     Active Substance: METHOTREXATE
     Dosage: DOSAGE FORM:NOT SPECIFIED
     Route: 065
  15. PROTOPIC [Concomitant]
     Active Substance: TACROLIMUS
     Dosage: DOSAGE FORM: OINTMENT TOPICAL
     Route: 065
  16. PROTOPIC [Concomitant]
     Active Substance: TACROLIMUS
     Dosage: DOSAGE FORM: OINTMENT TOPICAL
     Route: 065
  17. CYCLOSPORINE [Concomitant]
     Active Substance: CYCLOSPORINE
     Dosage: DOSAGE FORM:NOT SPECIFIED
     Route: 065
  18. ELIDEL [Concomitant]
     Active Substance: PIMECROLIMUS
     Dosage: UNK
     Route: 065

REACTIONS (16)
  - Depression [Recovered/Resolved with Sequelae]
  - Eczema [Recovered/Resolved with Sequelae]
  - Electric shock [Recovered/Resolved with Sequelae]
  - Erythema [Recovered/Resolved with Sequelae]
  - Fatigue [Recovered/Resolved with Sequelae]
  - Herpes simplex [Recovered/Resolved with Sequelae]
  - Infection [Recovered/Resolved with Sequelae]
  - Insomnia [Recovered/Resolved with Sequelae]
  - Oedema [Recovered/Resolved with Sequelae]
  - Pruritus [Recovered/Resolved with Sequelae]
  - Secretion discharge [Recovered/Resolved with Sequelae]
  - Skin burning sensation [Recovered/Resolved with Sequelae]
  - Skin exfoliation [Recovered/Resolved with Sequelae]
  - Temperature regulation disorder [Recovered/Resolved with Sequelae]
  - Topical steroid withdrawal reaction [Recovered/Resolved with Sequelae]
  - Urticaria [Recovered/Resolved with Sequelae]
